FAERS Safety Report 4395434-8 (Version None)
Quarter: 2004Q3

REPORT INFORMATION
  Report Type: 
  Country: None (occurrence: None)
  Receive Date: 20040713
  Receipt Date: 20040701
  Transmission Date: 20050211
  Serious: Yes (Life-Threatening, Hospitalization)
  Sender: FDA-Public Use
  Company Number: 200411557DE

PATIENT
  Age: 71 Year
  Sex: Female
  Weight: 69 kg

DRUGS (4)
  1. ARAVA [Suspect]
     Indication: RHEUMATOID ARTHRITIS
     Route: 048
     Dates: start: 20020101, end: 20040109
  2. CELEBREX [Suspect]
     Indication: RHEUMATOID ARTHRITIS
     Route: 048
     Dates: start: 20020801, end: 20040109
  3. IBUPROFEN ^STADA^ [Suspect]
     Indication: RHEUMATOID ARTHRITIS
     Route: 048
     Dates: end: 20031101
  4. PREDNISOLONE [Suspect]
     Indication: RHEUMATOID ARTHRITIS
     Route: 048
     Dates: start: 20040101, end: 20040101

REACTIONS (12)
  - ANAEMIA [None]
  - BACK PAIN [None]
  - BLOOD SODIUM DECREASED [None]
  - CANDIDIASIS [None]
  - DRUG INTERACTION [None]
  - DYSPNOEA EXERTIONAL [None]
  - GASTRITIS HAEMORRHAGIC [None]
  - HIATUS HERNIA [None]
  - PLATELET COUNT DECREASED [None]
  - REFLUX OESOPHAGITIS [None]
  - SEPSIS [None]
  - ULCER HAEMORRHAGE [None]
